FAERS Safety Report 13947454 (Version 1)
Quarter: 2017Q3

REPORT INFORMATION
  Report Type: Spontaneous
  Country: US (occurrence: US)
  Receive Date: 20170908
  Receipt Date: 20170908
  Transmission Date: 20171128
  Serious: No
  Sender: FDA-Public Use
  Company Number: US-009507513-1708USA013366

PATIENT
  Sex: Female

DRUGS (1)
  1. NUVARING [Suspect]
     Active Substance: ETHINYL ESTRADIOL\ETONOGESTREL
     Dosage: 1 DF, 3 WEEKS IN , 1 WEEK OUT
     Route: 067
     Dates: start: 20170723

REACTIONS (4)
  - Device expulsion [Not Recovered/Not Resolved]
  - Abnormal withdrawal bleeding [Not Recovered/Not Resolved]
  - Incorrect drug administration duration [Unknown]
  - Accidental underdose [Unknown]

NARRATIVE: CASE EVENT DATE: 20170813
